FAERS Safety Report 11233923 (Version 1)
Quarter: 2015Q3

REPORT INFORMATION
  Report Type: Spontaneous
  Country: US (occurrence: US)
  Receive Date: 20150702
  Receipt Date: 20150702
  Transmission Date: 20151125
  Serious: No
  Sender: FDA-Public Use
  Company Number: US-BAYER-2015-365543

PATIENT
  Age: 94 Year
  Sex: Female
  Weight: 60.77 kg

DRUGS (10)
  1. LIOTHYRONINE [Concomitant]
     Active Substance: LIOTHYRONINE
  2. RESTASIS [Concomitant]
     Active Substance: CYCLOSPORINE
  3. TYLENOL EXTRA STRENGTH [Concomitant]
     Active Substance: ACETAMINOPHEN
     Dosage: UNK UNK, PRN
  4. LEVOTHYROXIN [Concomitant]
     Active Substance: LEVOTHYROXINE
  5. WARFARIN [Concomitant]
     Active Substance: WARFARIN
  6. HYDROCHLOROTHIAZIDE. [Concomitant]
     Active Substance: HYDROCHLOROTHIAZIDE
  7. AMLODIPINE [Concomitant]
     Active Substance: AMLODIPINE BESYLATE
  8. MIRALAX [Suspect]
     Active Substance: POLYETHYLENE GLYCOL 3350
     Indication: CONSTIPATION
     Dosage: 17 G, QD
     Route: 048
     Dates: start: 201506
  9. SOTALOL. [Concomitant]
     Active Substance: SOTALOL
  10. MIRALAX [Suspect]
     Active Substance: POLYETHYLENE GLYCOL 3350
     Indication: CONSTIPATION
     Dosage: SLIGHTLY MORE THAN A TEASPOONFUL DAILY
     Route: 048

REACTIONS (2)
  - Product use issue [Unknown]
  - Product use issue [None]

NARRATIVE: CASE EVENT DATE: 201506
